FAERS Safety Report 14004885 (Version 4)
Quarter: 2019Q2

REPORT INFORMATION
  Report Type: Spontaneous
  Country: US (occurrence: US)
  Receive Date: 20170922
  Receipt Date: 20190627
  Transmission Date: 20190711
  Serious: No
  Sender: FDA-Public Use
  Company Number: US-PFIZER INC-2017409285

PATIENT
  Age: 81 Year
  Sex: Female
  Weight: 72 kg

DRUGS (4)
  1. LYRICA [Suspect]
     Active Substance: PREGABALIN
     Dosage: 225 MG, DAILY (TAKING ONE IN THE AM AND TWO AT NIGHT)
     Route: 048
     Dates: start: 201709, end: 20170920
  2. LYRICA [Suspect]
     Active Substance: PREGABALIN
     Dosage: 300 MG, DAILY (75MG, CAPSULE, ONE IN AM, 1 AT NOON, 2 AT BEDTIME)
     Route: 048
     Dates: start: 2017
  3. LYRICA [Suspect]
     Active Substance: PREGABALIN
     Indication: NEUROPATHY PERIPHERAL
     Dosage: 50 MG, UNK
  4. LYRICA [Suspect]
     Active Substance: PREGABALIN
     Dosage: 75 MG, 3X/DAY
     Dates: start: 201702

REACTIONS (8)
  - Emotional disorder [Recovering/Resolving]
  - Withdrawal syndrome [Recovering/Resolving]
  - Joint swelling [Unknown]
  - Intentional product use issue [Unknown]
  - Insomnia [Recovering/Resolving]
  - Burning sensation [Recovering/Resolving]
  - Weight increased [Unknown]
  - Hypoacusis [Unknown]

NARRATIVE: CASE EVENT DATE: 201709
